FAERS Safety Report 13724480 (Version 3)
Quarter: 2018Q4

REPORT INFORMATION
  Report Type: Spontaneous
  Country: BR (occurrence: BR)
  Receive Date: 20170706
  Receipt Date: 20181106
  Transmission Date: 20190204
  Serious: Yes (Other)
  Sender: FDA-Public Use
  Company Number: BR-PFIZER INC-2017285184

PATIENT
  Age: 37 Year
  Sex: Female

DRUGS (5)
  1. VINPOCETINE [Concomitant]
     Active Substance: VINPOCETINE
     Dosage: UNK
  2. PHOSPHATIDYL SERINE [Concomitant]
     Active Substance: PHOSPHATIDYL SERINE
     Dosage: UNK
  3. RIVOTRIL [Concomitant]
     Active Substance: CLONAZEPAM
     Dosage: UNK
     Dates: start: 1998
  4. FRONTAL [Suspect]
     Active Substance: ALPRAZOLAM
     Indication: NEUROSIS
     Dosage: 2 TABLETS OF 1 MG PER DAY
     Dates: start: 1984
  5. FLUOXETINE [Concomitant]
     Active Substance: FLUOXETINE HYDROCHLORIDE
     Dosage: UNK

REACTIONS (3)
  - Ischaemia [Recovered/Resolved]
  - Drug dependence [Not Recovered/Not Resolved]
  - Panic reaction [Not Recovered/Not Resolved]

NARRATIVE: CASE EVENT DATE: 1984
